FAERS Safety Report 7423883-X (Version None)
Quarter: 2011Q2

REPORT INFORMATION
  Report Type: 
  Country: None (occurrence: None)
  Receive Date: 20110419
  Receipt Date: 20110415
  Transmission Date: 20111010
  Serious: Yes (Hospitalization, Congenital Anomaly)
  Sender: FDA-Public Use
  Company Number: A0681240A

PATIENT
  Sex: Female

DRUGS (4)
  1. SYNTHROID [Concomitant]
     Route: 064
  2. PAXIL [Suspect]
     Indication: DEPRESSION
     Dosage: 15MG PER DAY
     Route: 064
  3. ALDOMET [Concomitant]
     Route: 064
  4. PRENATAL VITAMINS [Concomitant]
     Route: 064

REACTIONS (5)
  - CONGENITAL PULMONARY HYPERTENSION [None]
  - BRONCHOPULMONARY DYSPLASIA [None]
  - ATRIAL SEPTAL DEFECT [None]
  - CARDIAC ARREST [None]
  - DRUG EXPOSURE DURING PREGNANCY [None]
